FAERS Safety Report 20905111 (Version 1)
Quarter: 2022Q2

REPORT INFORMATION
  Report Type: Spontaneous
  Country: IT (occurrence: IT)
  Receive Date: 20220602
  Receipt Date: 20220602
  Transmission Date: 20220721
  Serious: Yes (Hospitalization)
  Sender: FDA-Public Use
  Company Number: None

PATIENT
  Age: 7 Year
  Sex: Male
  Weight: 30 kg

DRUGS (1)
  1. HEMLIBRA [Suspect]
     Active Substance: EMICIZUMAB-KXWH
     Indication: Factor VIII deficiency
     Route: 058
     Dates: start: 20220311, end: 20220311

REACTIONS (4)
  - Mobility decreased [Recovering/Resolving]
  - Decreased eye contact [Recovering/Resolving]
  - Oxygen saturation abnormal [Recovering/Resolving]
  - Critical illness [Recovering/Resolving]

NARRATIVE: CASE EVENT DATE: 20220320
